FAERS Safety Report 6681091-4 (Version None)
Quarter: 2010Q2

REPORT INFORMATION
  Report Type: 
  Country: None (occurrence: None)
  Receive Date: 20100414
  Receipt Date: 20100408
  Transmission Date: 20101027
  Serious: Yes (Death)
  Sender: FDA-Public Use
  Company Number: JP-ROCHE-683847

PATIENT
  Sex: Female
  Weight: 54 kg

DRUGS (6)
  1. HERCEPTIN [Suspect]
     Indication: BREAST CANCER METASTATIC
     Route: 041
     Dates: start: 20100114, end: 20100114
  2. HERCEPTIN [Suspect]
     Route: 041
     Dates: start: 20100121, end: 20100128
  3. EPIRUBICIN HYDROCHLORIDE [Suspect]
     Indication: BREAST CANCER METASTATIC
     Dosage: FARMORUBICIN
     Route: 041
     Dates: start: 20090514, end: 20090716
  4. EPIRUBICIN HYDROCHLORIDE [Suspect]
     Route: 041
     Dates: start: 20090820, end: 20091001
  5. EPIRUBICIN HYDROCHLORIDE [Suspect]
     Route: 041
     Dates: start: 20091029, end: 20091210
  6. PACLITAXEL [Concomitant]
     Dosage: NOTE: ONCE
     Route: 041
     Dates: start: 20100114, end: 20100121

REACTIONS (1)
  - CARDIAC FAILURE ACUTE [None]
